FAERS Safety Report 6614493-2 (Version None)
Quarter: 2010Q1

REPORT INFORMATION
  Report Type: 
  Country: None (occurrence: None)
  Receive Date: 20100304
  Receipt Date: 20100304
  Transmission Date: 20100710
  Serious: Yes (Other)
  Sender: FDA-Public Use
  Company Number: None

PATIENT
  Sex: Male
  Weight: 35.8342 kg

DRUGS (2)
  1. SINGULAIR [Suspect]
     Indication: ASTHMA
     Dosage: 4MG 1X PER DAY PO
     Route: 048
     Dates: start: 20040303
  2. SINGULAIR [Suspect]
     Indication: MULTIPLE ALLERGIES
     Dosage: 4MG 1X PER DAY PO
     Route: 048
     Dates: start: 20040303

REACTIONS (6)
  - ABNORMAL BEHAVIOUR [None]
  - EXCESSIVE EYE BLINKING [None]
  - GRIMACING [None]
  - PAIN IN EXTREMITY [None]
  - PRURITUS [None]
  - TIC [None]
